FAERS Safety Report 5401000-5 (Version None)
Quarter: 2007Q3

REPORT INFORMATION
  Report Type: 
  Country: None (occurrence: None)
  Receive Date: 20070730
  Receipt Date: 20070718
  Transmission Date: 20080115
  Serious: Yes (Hospitalization)
  Sender: FDA-Public Use
  Company Number: AU-SANOFI-SYNTHELABO-A01200707885

PATIENT
  Age: 62 Year
  Sex: Male

DRUGS (7)
  1. CENTRUM SELECT 50+ [Concomitant]
     Indication: DRUG USE FOR UNKNOWN INDICATION
     Dosage: UNK
     Route: 065
  2. HERB OF GOLD FISH OIL 1000 [Concomitant]
     Indication: DRUG USE FOR UNKNOWN INDICATION
     Dosage: UNK
     Route: 065
  3. ZOLPIDEM TARTRATE [Suspect]
     Indication: DRUG USE FOR UNKNOWN INDICATION
     Dosage: 10 MG
     Route: 048
     Dates: end: 20070408
  4. LOVAN [Concomitant]
     Indication: DRUG USE FOR UNKNOWN INDICATION
     Dosage: UNK
     Route: 065
  5. BEROCCA [Concomitant]
     Indication: DRUG USE FOR UNKNOWN INDICATION
     Dosage: UNK
     Route: 065
  6. ALCOHOL [Suspect]
     Dosage: UNK
     Route: 048
  7. SYMBICORT TURBUHALER 200/6 [Concomitant]
     Indication: DRUG USE FOR UNKNOWN INDICATION
     Dosage: UNK
     Route: 065

REACTIONS (6)
  - ABNORMAL SLEEP-RELATED EVENT [None]
  - AMNESIA [None]
  - EATING DISORDER [None]
  - FALL [None]
  - SOMNAMBULISM [None]
  - UPPER LIMB FRACTURE [None]
